FAERS Safety Report 9311226 (Version 2)
Quarter: 2013Q2

REPORT INFORMATION
  Report Type: Report from Study
  Country: US (occurrence: US)
  Receive Date: 20130528
  Receipt Date: 20130606
  Transmission Date: 20140414
  Serious: Yes (Hospitalization)
  Sender: FDA-Public Use
  Company Number: US-PFIZER INC-2013155650

PATIENT
  Age: 58 Year
  Sex: Female
  Weight: 61 kg

DRUGS (13)
  1. IRINOTECAN HCL [Suspect]
     Indication: COLORECTAL CANCER METASTATIC
     Dosage: 180 MG/M2, EVERY 14 DAYS
     Route: 042
     Dates: start: 20130225
  2. FLUOROURACIL [Suspect]
     Indication: COLORECTAL CANCER METASTATIC
     Dosage: 400 MG/M2, ON DAY 1 EVERY 14 DAYS
     Route: 040
     Dates: start: 20130225
  3. FLUOROURACIL [Suspect]
     Dosage: 2400 MG/M2, ON DAYS 1 AND 2 EVERY 14 DAYS
     Route: 042
     Dates: start: 20130225
  4. BLINDED THERAPY [Suspect]
     Indication: COLORECTAL CANCER METASTATIC
     Dosage: REGIMEN 1
     Dates: start: 20130225
  5. FOLINIC ACID [Suspect]
     Indication: COLORECTAL CANCER METASTATIC
     Dosage: 400 MG/M2, DAY 1 EVERY 14 DAYS
     Route: 042
     Dates: start: 20130225
  6. ATIVAN [Concomitant]
  7. NORCO [Concomitant]
  8. PROTONIX [Concomitant]
  9. VENTOLIN [Concomitant]
  10. AMLODIPINE W/ATORVASTATIN [Concomitant]
  11. IPRATROPIUM [Concomitant]
  12. METOPROLOL [Concomitant]
  13. SPIRONOLACTONE [Concomitant]

REACTIONS (1)
  - Femur fracture [Recovered/Resolved]
